FAERS Safety Report 5336035-4 (Version None)
Quarter: 2007Q2

REPORT INFORMATION
  Report Type: 
  Country: None (occurrence: None)
  Receive Date: 20070302
  Receipt Date: 20061214
  Transmission Date: 20071010
  Serious: No
  Sender: FDA-Public Use
  Company Number: 2006MP001284

PATIENT

DRUGS (1)
  1. DACOGEN [Suspect]
     Indication: DRUG USE FOR UNKNOWN INDICATION
     Dosage: 20 MG/M**2; QD; IV
     Route: 042
     Dates: start: 20061211

REACTIONS (4)
  - INCREASED TENDENCY TO BRUISE [None]
  - OFF LABEL USE [None]
  - PLATELET COUNT DECREASED [None]
  - WHITE BLOOD CELL COUNT DECREASED [None]
